FAERS Safety Report 19518624 (Version 1)
Quarter: 2021Q3

REPORT INFORMATION
  Report Type: Spontaneous
  Country: US (occurrence: US)
  Receive Date: 20210712
  Receipt Date: 20210712
  Transmission Date: 20211014
  Serious: No
  Sender: FDA-Public Use
  Company Number: US-GLAXOSMITHKLINE-US2021148721

PATIENT
  Age: 63 Year
  Sex: Male

DRUGS (1)
  1. ADVAIR DISKUS [Suspect]
     Active Substance: FLUTICASONE PROPIONATE\SALMETEROL XINAFOATE
     Indication: PRODUCT USED FOR UNKNOWN INDICATION
     Dosage: UNK, ADVAIR DISKUS 250/50MCG USE 1 INHALATION BY MOUTH TWICE DAILY
     Dates: start: 2016

REACTIONS (4)
  - Asthma [Not Recovered/Not Resolved]
  - Upper-airway cough syndrome [Unknown]
  - Dyspnoea [Unknown]
  - Secretion discharge [Unknown]

NARRATIVE: CASE EVENT DATE: 202105
